FAERS Safety Report 4801874-2 (Version None)
Quarter: 2005Q4

REPORT INFORMATION
  Report Type: 
  Country: None (occurrence: None)
  Receive Date: 20051011
  Receipt Date: 20050926
  Transmission Date: 20060501
  Serious: Yes (Hospitalization)
  Sender: FDA-Public Use
  Company Number: 218050

PATIENT
  Age: 52 Year
  Sex: Female
  Weight: 41.4 kg

DRUGS (3)
  1. BAY 43-9006 (SORAFENIB) [Suspect]
     Indication: OVARIAN CANCER
     Dosage: 200 MG, BID, ORAL
     Route: 048
     Dates: start: 20050111
  2. AVASTIN [Suspect]
     Indication: OVARIAN CANCER
     Dosage: 5 MG/KG, Q2W, INTRAVENOUS
     Route: 042
     Dates: start: 20050111
  3. EPOGEN [Concomitant]

REACTIONS (5)
  - ABDOMINAL ABSCESS [None]
  - CANCER PAIN [None]
  - ENTEROCUTANEOUS FISTULA [None]
  - INFECTION [None]
  - PAIN IN EXTREMITY [None]
